FAERS Safety Report 24339631 (Version 1)
Quarter: 2024Q3

REPORT INFORMATION
  Report Type: Spontaneous
  Country: US (occurrence: None)
  Receive Date: 20240919
  Receipt Date: 20240919
  Transmission Date: 20241017
  Serious: Yes (Life-Threatening)
  Sender: Public
  Company Number: None

PATIENT
  Sex: Female

DRUGS (1)
  1. AMBRISENTAN [Suspect]
     Active Substance: AMBRISENTAN
     Indication: Pulmonary arterial hypertension
     Dosage: 10 MG DALY ORAL ?
     Route: 048

REACTIONS (3)
  - Cerebrovascular accident [None]
  - Vasospasm [None]
  - Haemoglobin decreased [None]
